FAERS Safety Report 6865593-3 (Version None)
Quarter: 2010Q3

REPORT INFORMATION
  Report Type: 
  Country: None (occurrence: None)
  Receive Date: 20100721
  Receipt Date: 20080425
  Transmission Date: 20110219
  Serious: No
  Sender: FDA-Public Use
  Company Number: US-PFIZER INC-2008037694

PATIENT
  Sex: Male

DRUGS (5)
  1. CHANTIX [Suspect]
     Indication: SMOKING CESSATION THERAPY
     Route: 048
     Dates: start: 20080201
  2. PERCOCET [Concomitant]
  3. PREVACID [Concomitant]
  4. VERAPAMIL [Concomitant]
  5. LEXAPRO [Concomitant]

REACTIONS (2)
  - ABDOMINAL PAIN UPPER [None]
  - VOMITING [None]
